FAERS Safety Report 9493490 (Version 1)
Quarter: 2013Q3

REPORT INFORMATION
  Report Type: Spontaneous
  Country: PA (occurrence: PA)
  Receive Date: 20130902
  Receipt Date: 20130902
  Transmission Date: 20140515
  Serious: Yes (Other)
  Sender: FDA-Public Use
  Company Number: PA-JNJFOC-20130812536

PATIENT
  Age: 94 Year
  Sex: Female

DRUGS (3)
  1. ELEQUINE [Suspect]
     Indication: PRODUCT USED FOR UNKNOWN INDICATION
     Dosage: 750 UNITS NOTS SPECIFIED
     Route: 065
  2. DIGOXIN [Concomitant]
     Route: 065
  3. ANTIHYPERTENSIVE [Concomitant]
     Indication: HYPERTENSION
     Route: 065

REACTIONS (3)
  - Dermatitis allergic [Unknown]
  - Urinary retention [Unknown]
  - Adverse event [Unknown]
